FAERS Safety Report 8881221 (Version 1)
Quarter: 2012Q4

REPORT INFORMATION
  Report Type: 
  Country: AR (occurrence: AR)
  Receive Date: 20121031
  Receipt Date: 20121031
  Transmission Date: 20130627
  Serious: Yes (Other)
  Sender: FDA-Public Use
  Company Number: PHHY2012AR095607

PATIENT
  Sex: Female

DRUGS (2)
  1. ONBREZ [Suspect]
     Indication: CHRONIC OBSTRUCTIVE PULMONARY DISEASE
     Dosage: 150 mg, QD
     Dates: start: 201207
  2. LEVOTHYROXINE [Concomitant]

REACTIONS (1)
  - Nodule [Unknown]
